FAERS Safety Report 4868822-0 (Version None)
Quarter: 2005Q4

REPORT INFORMATION
  Report Type: 
  Country: None (occurrence: None)
  Receive Date: 20051223
  Receipt Date: 20051214
  Transmission Date: 20060501
  Serious: Yes (Other)
  Sender: FDA-Public Use
  Company Number: 2005162624

PATIENT
  Age: 67 Year
  Sex: Male

DRUGS (4)
  1. XALATAN [Suspect]
     Indication: GLAUCOMA
     Dosage: 1 DROP (1 DROP, 1 IN 1 D), INTRAOCULAR
     Route: 031
     Dates: start: 20051025, end: 20051126
  2. IBUDILAST [Concomitant]
  3. FLUMETHOLON (FLUOROMETHOLONE) [Concomitant]
  4. CUMOROL (CROMOGLICATE SODIUM) [Concomitant]

REACTIONS (7)
  - CONDITION AGGRAVATED [None]
  - CONJUNCTIVAL HYPERAEMIA [None]
  - CORNEAL OEDEMA [None]
  - GLAUCOMA [None]
  - HALO VISION [None]
  - OCULAR HYPERTENSION [None]
  - VISION BLURRED [None]
